FAERS Safety Report 4683455-7 (Version None)
Quarter: 2005Q2

REPORT INFORMATION
  Report Type: 
  Country: None (occurrence: None)
  Receive Date: 20050603
  Receipt Date: 20050603
  Transmission Date: 20051028
  Serious: Yes (Hospitalization)
  Sender: FDA-Public Use
  Company Number: None

PATIENT
  Age: 78 Year
  Sex: Female

DRUGS (2)
  1. REMERON [Suspect]
     Indication: DEPRESSION
     Dosage: 15 MG QHS
     Dates: start: 20050405
  2. BUSPAR [Concomitant]

REACTIONS (4)
  - DIZZINESS [None]
  - DROOLING [None]
  - DYSARTHRIA [None]
  - VISION BLURRED [None]
